FAERS Safety Report 19859916 (Version 2)
Quarter: 2022Q1

REPORT INFORMATION
  Report Type: Spontaneous
  Country: US (occurrence: US)
  Receive Date: 20210920
  Receipt Date: 20220314
  Transmission Date: 20220423
  Serious: No
  Sender: FDA-Public Use
  Company Number: US-AMNEAL PHARMACEUTICALS-2021-AMRX-02949

PATIENT
  Sex: Female

DRUGS (1)
  1. ETHINYL ESTRADIOL\NORELGESTROMIN [Suspect]
     Active Substance: ETHINYL ESTRADIOL\NORELGESTROMIN
     Indication: Product used for unknown indication
     Dosage: UNK
     Route: 062

REACTIONS (3)
  - Product adhesion issue [Unknown]
  - Product substitution issue [Unknown]
  - No adverse event [Unknown]

NARRATIVE: CASE EVENT DATE: 20210101
